FAERS Safety Report 4582722-5 (Version None)
Quarter: 2005Q1

REPORT INFORMATION
  Report Type: 
  Country: None (occurrence: None)
  Receive Date: 20050125
  Receipt Date: 20040928
  Transmission Date: 20050727
  Serious: No
  Sender: FDA-Public Use
  Company Number: USA040979630

PATIENT
  Age: 74 Year
  Sex: Female

DRUGS (8)
  1. FORTEO [Suspect]
     Indication: OSTEOPOROSIS
     Dates: start: 20040101
  2. PREDNISONE [Concomitant]
  3. CELEBREX [Concomitant]
  4. DARVOCET-N 100 [Concomitant]
  5. TOPROL-XL [Concomitant]
  6. NITRO PATCH (GLYCERYL TRINITRATE) [Concomitant]
  7. VITAMINS [Concomitant]
  8. ENBREL [Concomitant]

REACTIONS (4)
  - BLADDER DISORDER [None]
  - DIFFICULTY IN WALKING [None]
  - KIDNEY INFECTION [None]
  - URINARY INCONTINENCE [None]
